FAERS Safety Report 5477987-1 (Version None)
Quarter: 2007Q4

REPORT INFORMATION
  Report Type: 
  Country: None (occurrence: None)
  Receive Date: 20071005
  Receipt Date: 20070925
  Transmission Date: 20080405
  Serious: Yes (Hospitalization)
  Sender: FDA-Public Use
  Company Number: FR-TYCO HEALTHCARE/MALLINCKRODT-T200701177

PATIENT

DRUGS (4)
  1. HEXABRIX [Suspect]
     Indication: CHOLANGIOGRAM
     Dosage: UNK, SINGLE
     Route: 042
     Dates: start: 20070804, end: 20070804
  2. ROCEPHIN [Suspect]
     Indication: SEPSIS
     Dates: start: 20070729, end: 20070806
  3. FLAGYL                             /00012501/ [Suspect]
     Indication: SEPSIS
     Dates: start: 20070731, end: 20070806
  4. AMIKLIN [Suspect]
     Indication: SEPSIS
     Dates: start: 20070731, end: 20070804

REACTIONS (4)
  - DERMATITIS BULLOUS [None]
  - ERYTHEMA [None]
  - RASH PUSTULAR [None]
  - RASH VESICULAR [None]
